FAERS Safety Report 21104256 (Version 4)
Quarter: 2024Q4

REPORT INFORMATION
  Report Type: Report from Study
  Country: US (occurrence: US)
  Receive Date: 20220720
  Receipt Date: 20241015
  Transmission Date: 20250114
  Serious: Yes (Hospitalization, Other)
  Sender: NOVARTIS
  Company Number: NVSC2022US164190

PATIENT
  Sex: Male

DRUGS (6)
  1. ENTRESTO [Suspect]
     Active Substance: SACUBITRIL\VALSARTAN
     Indication: Heart failure with reduced ejection fraction
     Dosage: 1 DOSAGE FORM, BID (24/26 MG)
     Route: 048
     Dates: start: 202205
  2. ENTRESTO [Suspect]
     Active Substance: SACUBITRIL\VALSARTAN
     Dosage: UNK (24/26 MG), BID
     Route: 048
     Dates: end: 20220922
  3. ASPIRIN [Concomitant]
     Active Substance: ASPIRIN
     Indication: Product used for unknown indication
     Dosage: UNK (81)
     Route: 065
  4. FARXIGA [Concomitant]
     Active Substance: DAPAGLIFLOZIN PROPANEDIOL
     Indication: Product used for unknown indication
     Dosage: UNK
     Route: 065
  5. FOLIC ACID [Concomitant]
     Active Substance: FOLIC ACID
     Indication: Product used for unknown indication
     Dosage: UNK
     Route: 065
  6. FUROSEMIDE [Concomitant]
     Active Substance: FUROSEMIDE
     Indication: Product used for unknown indication
     Dosage: UNK
     Route: 065

REACTIONS (12)
  - Hepatitis alcoholic [Unknown]
  - Hepatorenal syndrome [Unknown]
  - Haemorrhage [Unknown]
  - Gait inability [Unknown]
  - Peripheral swelling [Unknown]
  - Pain in extremity [Unknown]
  - Papule [Unknown]
  - Lethargy [Unknown]
  - Fatigue [Unknown]
  - Asthenia [Unknown]
  - Cough [Unknown]
  - Inappropriate schedule of product administration [Unknown]
